FAERS Safety Report 10456712 (Version 1)
Quarter: 2014Q3

REPORT INFORMATION
  Report Type: Spontaneous
  Country: DE (occurrence: DE)
  Receive Date: 20140916
  Receipt Date: 20140916
  Transmission Date: 20150326
  Serious: Yes (Disabling)
  Sender: FDA-Public Use
  Company Number: GXKR2014DE003474

PATIENT
  Age: 71 Year
  Sex: Male
  Weight: 76 kg

DRUGS (1)
  1. AMOXICLAV 1A PHARMA [Suspect]
     Active Substance: AMOXICILLIN\CLAVULANIC ACID
     Indication: URINARY TRACT INFECTION
     Dosage: 1 DF, BID
     Route: 048
     Dates: start: 20120524, end: 20120603

REACTIONS (2)
  - Rash pruritic [Recovered/Resolved]
  - Vitiligo [Recovering/Resolving]

NARRATIVE: CASE EVENT DATE: 20120531
